FAERS Safety Report 10011775 (Version 1)
Quarter: 2014Q1

REPORT INFORMATION
  Report Type: Spontaneous
  Country: US (occurrence: None)
  Receive Date: 20140304
  Receipt Date: 20140304
  Transmission Date: 20141002
  Serious: Yes (Other)
  Sender: FDA-Public Use
  Company Number: RB-56027-2013

PATIENT
  Age: 30 Year
  Sex: Female

DRUGS (1)
  1. SUBOXONE 8 MG [Suspect]
     Indication: DRUG DEPENDENCE
     Dosage: (8 MG SUBLINGUAL)
     Dates: start: 2008

REACTIONS (4)
  - Hypersensitivity [None]
  - Pharyngeal oedema [None]
  - Dyspnoea [None]
  - Somnolence [None]
